FAERS Safety Report 5754325-8 (Version None)
Quarter: 2008Q2

REPORT INFORMATION
  Report Type: 
  Country: None (occurrence: None)
  Receive Date: 20080530
  Receipt Date: 20080221
  Transmission Date: 20081010
  Serious: No
  Sender: FDA-Public Use
  Company Number: US-ABBOTT-08P-163-0439402-00

PATIENT
  Sex: Female
  Weight: 65.376 kg

DRUGS (1)
  1. GENGRAF [Suspect]
     Indication: RHEUMATOID ARTHRITIS
     Dosage: PRODUCT DISCARDED
     Route: 048
     Dates: start: 20071201, end: 20071207

REACTIONS (1)
  - RASH [None]
